FAERS Safety Report 25564315 (Version 1)
Quarter: 2025Q3

REPORT INFORMATION
  Report Type: Report from Study
  Country: US (occurrence: US)
  Receive Date: 20250716
  Receipt Date: 20250716
  Transmission Date: 20251021
  Serious: Yes (Other)
  Sender: ABBVIE
  Company Number: US-ABBVIE-6368038

PATIENT
  Age: 29 Year
  Sex: Male

DRUGS (1)
  1. HUMIRA [Suspect]
     Active Substance: ADALIMUMAB
     Indication: Uveitis
     Route: 058
     Dates: start: 201906

REACTIONS (7)
  - Pituitary tumour [Unknown]
  - Anxiety [Unknown]
  - Cortisol increased [Not Recovered/Not Resolved]
  - Adrenal neoplasm [Unknown]
  - Tremor [Unknown]
  - Heart rate increased [Unknown]
  - Hyperhidrosis [Unknown]

NARRATIVE: CASE EVENT DATE: 20250101
